FAERS Safety Report 25445483 (Version 1)
Quarter: 2025Q2

REPORT INFORMATION
  Report Type: Spontaneous
  Country: US (occurrence: US)
  Receive Date: 20250617
  Receipt Date: 20250617
  Transmission Date: 20250717
  Serious: Yes (Other)
  Sender: MADRIGAL PHARMACEUTICALS
  Company Number: US-MADRIGAL PHARMACEUTICALS, INC-2025REZ6362

PATIENT

DRUGS (2)
  1. REZDIFFRA [Suspect]
     Active Substance: RESMETIROM
     Indication: Hepatic steatosis
     Route: 048
     Dates: start: 20250422
  2. LATANOPROST [Concomitant]
     Active Substance: LATANOPROST
     Indication: Glaucoma

REACTIONS (7)
  - Skin cancer [Unknown]
  - Acrochordon excision [Unknown]
  - Eye naevus [Unknown]
  - Weight decreased [Unknown]
  - Peripheral swelling [Not Recovered/Not Resolved]
  - Back disorder [Unknown]
  - Pruritus [Recovered/Resolved]

NARRATIVE: CASE EVENT DATE: 20250401
